FAERS Safety Report 16013408 (Version 3)
Quarter: 2019Q1

REPORT INFORMATION
  Report Type: Spontaneous
  Country: ES (occurrence: ES)
  Receive Date: 20190227
  Receipt Date: 20190326
  Transmission Date: 20190418
  Serious: Yes (Hospitalization, Other)
  Sender: FDA-Public Use
  Company Number: ES-MYLANLABS-M-EU-2010120285

PATIENT
  Age: 55 Year
  Sex: Female

DRUGS (4)
  1. ZOLPIDEM [Suspect]
     Active Substance: ZOLPIDEM\ZOLPIDEM TARTRATE
     Indication: DEPRESSION
     Dosage: 10 MILLIGRAM, QD (10 MG, Q.H.S.)
     Route: 065
  2. ZOLPIDEM [Suspect]
     Active Substance: ZOLPIDEM\ZOLPIDEM TARTRATE
     Indication: INSOMNIA
     Dosage: UNK
  3. ALPRAZOLAM. [Suspect]
     Active Substance: ALPRAZOLAM
     Indication: AFFECTIVE DISORDER
     Dosage: UNK
     Route: 065
  4. FLUOXETINE [Suspect]
     Active Substance: FLUOXETINE HYDROCHLORIDE
     Indication: AFFECTIVE DISORDER
     Dosage: UNK
     Route: 065

REACTIONS (8)
  - Obesity [Recovering/Resolving]
  - Abnormal behaviour [Recovered/Resolved]
  - Abnormal sleep-related event [Recovered/Resolved]
  - Sleep-related eating disorder [Recovered/Resolved]
  - Psychotic disorder [Unknown]
  - Treatment noncompliance [Unknown]
  - Injury [Recovered/Resolved]
  - Amnesia [Unknown]
